FAERS Safety Report 8429570-3 (Version None)
Quarter: 2012Q2

REPORT INFORMATION
  Report Type: 
  Country: None (occurrence: None)
  Receive Date: 20120612
  Receipt Date: 20120605
  Transmission Date: 20120825
  Serious: Yes (Death, Other)
  Sender: FDA-Public Use
  Company Number: US-JNJFOC-20120603706

PATIENT

DRUGS (10)
  1. RITUXIMAB [Suspect]
     Indication: DIFFUSE LARGE B-CELL LYMPHOMA
     Dosage: FIRST INFUSION ADMINISTERED AT 50 MG/HR; IN ABSENCE OF TOXICITY INCREASED BY 50 MG HR
     Route: 042
  2. PREDNISONE TAB [Suspect]
     Indication: B-CELL LYMPHOMA
     Route: 065
  3. VINCRISTINE [Suspect]
     Indication: DIFFUSE LARGE B-CELL LYMPHOMA
     Route: 065
  4. CYCLOPHOSPHAMIDE [Suspect]
     Indication: DIFFUSE LARGE B-CELL LYMPHOMA
     Route: 065
  5. DOXORUBICIN HCL [Suspect]
     Indication: DIFFUSE LARGE B-CELL LYMPHOMA
     Route: 042
  6. RITUXIMAB [Suspect]
     Indication: B-CELL LYMPHOMA
     Dosage: FIRST INFUSION ADMINISTERED AT 50 MG/HR; IN ABSENCE OF TOXICITY INCREASED BY 50 MG HR
     Route: 042
  7. CYCLOPHOSPHAMIDE [Suspect]
     Indication: B-CELL LYMPHOMA
     Route: 065
  8. DOXORUBICIN HCL [Suspect]
     Indication: B-CELL LYMPHOMA
     Route: 042
  9. VINCRISTINE [Suspect]
     Indication: B-CELL LYMPHOMA
     Route: 065
  10. PREDNISONE TAB [Suspect]
     Indication: DIFFUSE LARGE B-CELL LYMPHOMA
     Route: 065

REACTIONS (3)
  - ADVERSE EVENT [None]
  - DEATH [None]
  - INFUSION RELATED REACTION [None]
